FAERS Safety Report 10704578 (Version 1)
Quarter: 2015Q1

REPORT INFORMATION
  Report Type: Spontaneous
  Country: US (occurrence: US)
  Receive Date: 20150112
  Receipt Date: 20150112
  Transmission Date: 20150721
  Serious: Yes (Other)
  Sender: FDA-Public Use
  Company Number: US-ELI_LILLY_AND_COMPANY-US201501000095

PATIENT
  Sex: Male

DRUGS (4)
  1. HUMALOG MIX50/50 [Suspect]
     Active Substance: INSULIN LISPRO
     Indication: TYPE 2 DIABETES MELLITUS
     Dosage: 50 U, BID
     Route: 065
     Dates: start: 201412
  2. HUMALOG [Suspect]
     Active Substance: INSULIN LISPRO
     Indication: TYPE 2 DIABETES MELLITUS
     Dosage: 45 U, TID
     Route: 065
     Dates: start: 2013, end: 201412
  3. LINAGLIPTIN [Concomitant]
     Active Substance: LINAGLIPTIN
  4. HUMALOG [Suspect]
     Active Substance: INSULIN LISPRO
     Indication: TYPE 2 DIABETES MELLITUS
     Dosage: 45 U, TID
     Route: 065
     Dates: start: 2013

REACTIONS (3)
  - Thrombosis [Not Recovered/Not Resolved]
  - Blood glucose increased [Unknown]
  - Drug ineffective [Unknown]
